FAERS Safety Report 10012731 (Version 1)
Quarter: 2014Q1

REPORT INFORMATION
  Report Type: Spontaneous
  Country: US (occurrence: US)
  Receive Date: 20140314
  Receipt Date: 20140314
  Transmission Date: 20141002
  Serious: Yes (Other)
  Sender: FDA-Public Use
  Company Number: US-FRI-1000060558

PATIENT
  Sex: Female

DRUGS (3)
  1. ARMOUR THYROID [Suspect]
     Dates: start: 2013, end: 201402
  2. ARMOUR THYROID [Suspect]
     Dosage: 90 MG
     Dates: start: 201402, end: 20140302
  3. ARMOUR THYROID [Suspect]
     Dosage: 60 MG
     Dates: start: 20140303

REACTIONS (6)
  - Loss of consciousness [Recovered/Resolved]
  - Head injury [Unknown]
  - Syncope [Recovered/Resolved]
  - Hypotension [Unknown]
  - Blood thyroid stimulating hormone decreased [Not Recovered/Not Resolved]
  - Thyroxine free decreased [Not Recovered/Not Resolved]
